FAERS Safety Report 7299599-X (Version None)
Quarter: 2011Q1

REPORT INFORMATION
  Report Type: 
  Country: None (occurrence: None)
  Receive Date: 20110217
  Receipt Date: 20110210
  Transmission Date: 20110831
  Serious: No
  Sender: FDA-Public Use
  Company Number: US-US-EMD SERONO, INC.-7036640

PATIENT
  Sex: Female

DRUGS (7)
  1. REBIF [Suspect]
     Route: 058
     Dates: start: 20110101, end: 20110131
  2. TYLENOL [Concomitant]
     Indication: PREMEDICATION
  3. LEVOTHYROXINE SODIUM [Concomitant]
  4. REBIF [Suspect]
     Indication: MULTIPLE SCLEROSIS
     Route: 058
     Dates: start: 20110115, end: 20110101
  5. DIOVAN HCT [Concomitant]
  6. CELEBREX [Concomitant]
     Indication: OSTEOARTHRITIS
  7. BACLOFEN [Concomitant]

REACTIONS (4)
  - RASH [None]
  - PYREXIA [None]
  - INJECTION SITE ERYTHEMA [None]
  - ARTHRITIS [None]
